FAERS Safety Report 5482108-5 (Version None)
Quarter: 2007Q4

REPORT INFORMATION
  Report Type: 
  Country: None (occurrence: None)
  Receive Date: 20071011
  Receipt Date: 20071003
  Transmission Date: 20080405
  Serious: Yes (Hospitalization)
  Sender: FDA-Public Use
  Company Number: PHFR2007GB02907

PATIENT
  Age: 57 Year
  Sex: Female

DRUGS (1)
  1. ESTRADERM [Suspect]
     Dosage: 100MG
     Route: 062

REACTIONS (2)
  - CIRCULATORY COLLAPSE [None]
  - NO THERAPEUTIC RESPONSE [None]
